FAERS Safety Report 5671520-7 (Version None)
Quarter: 2008Q1

REPORT INFORMATION
  Report Type: 
  Country: None (occurrence: None)
  Receive Date: 20080318
  Receipt Date: 20080318
  Transmission Date: 20080703
  Serious: Yes (Death)
  Sender: FDA-Public Use
  Company Number: US-BOEHRINGER INGELHEIM GMBH, GERMANY-2008-BP-03948BP

PATIENT
  Sex: Male

DRUGS (10)
  1. MICARDIS [Suspect]
     Indication: HYPERTENSION
     Route: 048
     Dates: end: 20080101
  2. OPANA ER [Suspect]
     Indication: PAIN
     Route: 048
     Dates: start: 20071101, end: 20080101
  3. CLONAZEPAM [Suspect]
     Indication: ANXIETY
     Route: 048
     Dates: end: 20080101
  4. BACLOFEN [Suspect]
     Route: 048
     Dates: end: 20080101
  5. CYCLOBENZAPRINE HCL [Suspect]
     Route: 048
     Dates: end: 20080101
  6. ROZEREM [Suspect]
     Indication: INSOMNIA
     Dates: end: 20080101
  7. AMITRIPTYLINE HCL [Suspect]
     Indication: DEPRESSION
     Route: 048
     Dates: end: 20080101
  8. AMITRIPTYLINE HCL [Suspect]
     Indication: ANXIETY
  9. WELLBUTRIN XL [Suspect]
     Indication: DEPRESSION
     Route: 048
     Dates: end: 20080101
  10. OXYCODONE HCL [Suspect]
     Indication: PAIN
     Route: 048
     Dates: end: 20080101

REACTIONS (1)
  - DRUG TOXICITY [None]
